FAERS Safety Report 23696044 (Version 4)
Quarter: 2024Q3

REPORT INFORMATION
  Report Type: Report from Study
  Country: US (occurrence: US)
  Receive Date: 20240402
  Receipt Date: 20240709
  Transmission Date: 20241016
  Serious: Yes (Hospitalization)
  Sender: AMGEN
  Company Number: US-HORIZON THERAPEUTICS-HZN-2024-002815

PATIENT
  Age: 50 Year
  Sex: Female

DRUGS (2)
  1. PROCYSBI [Suspect]
     Active Substance: CYSTEAMINE BITARTRATE
     Indication: Cystinosis
     Dosage: 975 MG, BID (3 PACKETS: 300 MG AND 1 PACKET:75 MG)
     Route: 048
     Dates: start: 20240210
  2. PROCYSBI [Suspect]
     Active Substance: CYSTEAMINE BITARTRATE
     Dosage: 975 MG, BID (3 PACKETS: 300 MG AND 1 PACKET:75 MG)
     Route: 048
     Dates: start: 2024

REACTIONS (2)
  - Hypervolaemia [Unknown]
  - Influenza [Recovered/Resolved]

NARRATIVE: CASE EVENT DATE: 20240301
